FAERS Safety Report 16638083 (Version 2)
Quarter: 2019Q3

REPORT INFORMATION
  Report Type: Spontaneous
  Country: ES (occurrence: ES)
  Receive Date: 20190726
  Receipt Date: 20190726
  Transmission Date: 20191004
  Serious: Yes (Death, Hospitalization, Other)
  Sender: FDA-Public Use
  Company Number: PHHY2019ES171325

PATIENT
  Age: 12 Year
  Sex: Male

DRUGS (2)
  1. CICLOSPORIN [Suspect]
     Active Substance: CYCLOSPORINE
     Indication: ACUTE GRAFT VERSUS HOST DISEASE IN LIVER
  2. CICLOSPORIN [Suspect]
     Active Substance: CYCLOSPORINE
     Indication: ACUTE GRAFT VERSUS HOST DISEASE IN INTESTINE
     Dosage: UNK
     Route: 042

REACTIONS (21)
  - Hypertension [Unknown]
  - Encephalopathy [Unknown]
  - Depressed level of consciousness [Unknown]
  - Renal failure [Unknown]
  - Rubella [Fatal]
  - Acute graft versus host disease in intestine [Unknown]
  - Diarrhoea [Unknown]
  - Pyrexia [Unknown]
  - Hypotension [Unknown]
  - Acute graft versus host disease in liver [Unknown]
  - Hyperammonaemia [Fatal]
  - Ocular icterus [Unknown]
  - Acute hepatic failure [Fatal]
  - Intestinal haemorrhage [Unknown]
  - Rash generalised [Unknown]
  - Coagulopathy [Unknown]
  - Tachycardia [Unknown]
  - Large intestinal ulcer [Unknown]
  - Respiratory failure [Unknown]
  - Thrombotic microangiopathy [Unknown]
  - Hepatic necrosis [Fatal]

NARRATIVE: CASE EVENT DATE: 20090531
